FAERS Safety Report 6265354-2 (Version None)
Quarter: 2009Q3

REPORT INFORMATION
  Report Type: 
  Country: None (occurrence: None)
  Receive Date: 20090709
  Receipt Date: 20090630
  Transmission Date: 20100115
  Serious: Yes (Death)
  Sender: FDA-Public Use
  Company Number: 2009-199603-NL

PATIENT
  Age: 34 Year
  Sex: Female

DRUGS (3)
  1. MARVELON [Suspect]
     Indication: DYSMENORRHOEA
     Dosage: 1 DF ORAL
     Route: 048
     Dates: start: 20081130, end: 20090601
  2. MARVELON [Suspect]
     Indication: MENSTRUATION IRREGULAR
     Dosage: 1 DF ORAL
     Route: 048
     Dates: start: 20081130, end: 20090601
  3. MARVELON [Suspect]
     Indication: PREMENSTRUAL SYNDROME
     Dosage: 1 DF ORAL
     Route: 048
     Dates: start: 20081130, end: 20090601

REACTIONS (4)
  - CARDIAC ARREST [None]
  - HYPOXIC ENCEPHALOPATHY [None]
  - PULMONARY EMBOLISM [None]
  - RESPIRATORY ARREST [None]
